FAERS Safety Report 13106581 (Version 2)
Quarter: 2017Q1

REPORT INFORMATION
  Report Type: Spontaneous
  Country: US (occurrence: US)
  Receive Date: 20170111
  Receipt Date: 20170125
  Transmission Date: 20170428
  Serious: Yes (Death)
  Sender: FDA-Public Use
  Company Number: US-ACTELION-A-NJ2017-148058

PATIENT
  Age: 75 Year
  Sex: Female

DRUGS (8)
  1. ASPIRIN. [Concomitant]
     Active Substance: ASPIRIN
  2. REMODULIN [Concomitant]
     Active Substance: TREPROSTINIL
     Dosage: 5 MG/ML
  3. SILDENAFIL. [Concomitant]
     Active Substance: SILDENAFIL
  4. DILTIAZEM CD [Concomitant]
     Active Substance: DILTIAZEM
  5. OPSUMIT [Suspect]
     Active Substance: MACITENTAN
     Indication: PULMONARY ARTERIAL HYPERTENSION
     Dosage: 10 MG, QD
     Route: 048
     Dates: start: 20140925, end: 20170102
  6. LEVEMIR [Concomitant]
     Active Substance: INSULIN DETEMIR
  7. JANUVIA [Concomitant]
     Active Substance: SITAGLIPTIN PHOSPHATE
  8. FUROSEMIDE. [Concomitant]
     Active Substance: FUROSEMIDE

REACTIONS (1)
  - Death [Fatal]

NARRATIVE: CASE EVENT DATE: 20170102
